FAERS Safety Report 7968884-8 (Version None)
Quarter: 2011Q4

REPORT INFORMATION
  Report Type: 
  Country: None (occurrence: None)
  Receive Date: 20111209
  Receipt Date: 20111206
  Transmission Date: 20120403
  Serious: Yes (Death, Hospitalization)
  Sender: FDA-Public Use
  Company Number: US-CELGENEUS-163-21880-11102416

PATIENT
  Sex: Male

DRUGS (3)
  1. REVLIMID [Suspect]
     Indication: MULTIPLE MYELOMA
     Dosage: 25 MILLIGRAM
     Route: 048
     Dates: start: 20110401, end: 20110901
  2. DEXAMETHASONE [Concomitant]
     Dosage: 28 MILLIGRAM
     Route: 065
     Dates: start: 20110201, end: 20110901
  3. VELCADE [Concomitant]
     Dosage: 1.3 MILLIGRAM/SQ. METER
     Route: 041
     Dates: start: 20110201, end: 20110401

REACTIONS (2)
  - SEPTIC SHOCK [None]
  - THROMBOPHLEBITIS [None]
